FAERS Safety Report 6282474-7 (Version None)
Quarter: 2009Q3

REPORT INFORMATION
  Report Type: 
  Country: None (occurrence: None)
  Receive Date: 20090721
  Receipt Date: 20090721
  Transmission Date: 20100115
  Serious: Yes (Hospitalization)
  Sender: FDA-Public Use
  Company Number: None

PATIENT
  Age: 70 Year
  Sex: Female

DRUGS (2)
  1. FENTANYL-100 [Suspect]
     Indication: AORTOGRAM
     Dosage: 150 MCG ONCE IV
     Route: 042
     Dates: start: 20090520, end: 20090520
  2. MIDAZOLAM HCL [Suspect]
     Indication: AORTOGRAM
     Dosage: 3 MG ONCE IV
     Route: 042
     Dates: start: 20090520, end: 20090520

REACTIONS (1)
  - RESPIRATORY DEPRESSION [None]
